FAERS Safety Report 5190821-2 (Version None)
Quarter: 2006Q4

REPORT INFORMATION
  Report Type: 
  Country: None (occurrence: None)
  Receive Date: 20061222
  Receipt Date: 20061114
  Transmission Date: 20070319
  Serious: No
  Sender: FDA-Public Use
  Company Number: US-ELI_LILLY_AND_COMPANY-US200611002912

PATIENT
  Age: 54 Year
  Sex: Female
  Weight: 126.98 kg

DRUGS (1)
  1. FORTEO [Suspect]
     Indication: OSTEOMALACIA
     Dates: start: 20060601, end: 20061001

REACTIONS (5)
  - DECREASED APPETITE [None]
  - FATIGUE [None]
  - IRRITABILITY [None]
  - MALAISE [None]
  - NAUSEA [None]
